FAERS Safety Report 18279517 (Version 1)
Quarter: 2020Q3

REPORT INFORMATION
  Report Type: Spontaneous
  Country: CA (occurrence: CA)
  Receive Date: 20200917
  Receipt Date: 20200917
  Transmission Date: 20201103
  Serious: Yes (Life-Threatening, Hospitalization)
  Sender: FDA-Public Use
  Company Number: CA-JNJFOC-20200920053

PATIENT
  Age: 73 Year
  Sex: Female

DRUGS (21)
  1. FERROUS GLUCONATE [Concomitant]
     Active Substance: FERROUS GLUCONATE
  2. HYDROMORPHONE [Concomitant]
     Active Substance: HYDROMORPHONE
  3. INVOKANA [Suspect]
     Active Substance: CANAGLIFLOZIN
     Indication: TYPE 2 DIABETES MELLITUS
     Dosage: THERAPY DURATION: 03 DAYS
     Route: 048
  4. DULOXETINE. [Concomitant]
     Active Substance: DULOXETINE
  5. FOLIC ACID. [Concomitant]
     Active Substance: FOLIC ACID
  6. GABAPENTIN. [Concomitant]
     Active Substance: GABAPENTIN
  7. PERINDOPRIL [Concomitant]
     Active Substance: PERINDOPRIL
  8. TOVIAZ [Concomitant]
     Active Substance: FESOTERODINE FUMARATE
  9. ROSUVASTATIN. [Concomitant]
     Active Substance: ROSUVASTATIN
  10. TRULICITY [Concomitant]
     Active Substance: DULAGLUTIDE
  11. HYDROCHLOROTHIAZIDE. [Concomitant]
     Active Substance: HYDROCHLOROTHIAZIDE
  12. INSULIN REGULAR                    /01223201/ [Concomitant]
     Active Substance: INSULIN BEEF
  13. LEVOTHYROXINE. [Concomitant]
     Active Substance: LEVOTHYROXINE
  14. NIFEDIPINE. [Concomitant]
     Active Substance: NIFEDIPINE
  15. DESLORATADINE. [Concomitant]
     Active Substance: DESLORATADINE
  16. METHOTREXATE. [Concomitant]
     Active Substance: METHOTREXATE
  17. SOTALOL. [Concomitant]
     Active Substance: SOTALOL
  18. CELECOXIB. [Concomitant]
     Active Substance: CELECOXIB
  19. CHOLECALCIFEROL [Concomitant]
     Active Substance: CHOLECALCIFEROL
  20. SENNOSIDES A+B [Concomitant]
     Active Substance: SENNOSIDES A AND B
  21. TYLENOL CODEINE ELIXIR [Concomitant]

REACTIONS (1)
  - Euglycaemic diabetic ketoacidosis [Unknown]
